FAERS Safety Report 9438481 (Version 1)
Quarter: 2013Q3

REPORT INFORMATION
  Report Type: Spontaneous
  Country: IT (occurrence: IT)
  Receive Date: 20130802
  Receipt Date: 20130802
  Transmission Date: 20140515
  Serious: Yes (Hospitalization)
  Sender: FDA-Public Use
  Company Number: IT-ACTAVIS-2013-13505

PATIENT
  Age: 72 Year
  Sex: Male

DRUGS (5)
  1. IBUPROFEN (UNKNOWN) [Suspect]
     Indication: PAIN
     Dosage: 2 DF, DAILY
     Route: 048
     Dates: start: 20130601, end: 20130610
  2. TACHIDOL [Suspect]
     Indication: PAIN
     Dosage: 3 DF, DAILY
     Route: 048
     Dates: start: 20130605, end: 20130610
  3. MITTOVAL [Concomitant]
     Indication: PRODUCT USED FOR UNKNOWN INDICATION
     Dosage: UNK, UNKNOWN
     Route: 065
  4. TIMOLOL [Concomitant]
     Indication: PRODUCT USED FOR UNKNOWN INDICATION
     Dosage: UNK, UNKNOWN
     Route: 065
  5. BRINZOLAMIDE [Concomitant]
     Indication: PRODUCT USED FOR UNKNOWN INDICATION
     Dosage: UNK, UNKNOWN
     Route: 065

REACTIONS (2)
  - Haemolysis [Unknown]
  - Asthenia [Unknown]
